FAERS Safety Report 8098816-6 (Version None)
Quarter: 2012Q1

REPORT INFORMATION
  Report Type: 
  Country: None (occurrence: None)
  Receive Date: 20120129
  Receipt Date: 20110923
  Transmission Date: 20120608
  Serious: No
  Sender: FDA-Public Use
  Company Number: US-ABBOTT-11P-163-0857481-00

PATIENT
  Age: 29 Year
  Sex: Female

DRUGS (4)
  1. IMURAN [Concomitant]
     Indication: PRODUCT USED FOR UNKNOWN INDICATION
  2. ACETAMINOPHEN [Concomitant]
     Indication: PAIN
     Dosage: PRN
  3. HUMIRA [Suspect]
     Indication: CROHN'S DISEASE
  4. OMEPRAZOLE [Concomitant]
     Indication: PRODUCT USED FOR UNKNOWN INDICATION

REACTIONS (4)
  - PAIN [None]
  - SKIN EXFOLIATION [None]
  - SUNBURN [None]
  - FEELING HOT [None]
